FAERS Safety Report 7373010-2 (Version None)
Quarter: 2011Q1

REPORT INFORMATION
  Report Type: 
  Country: None (occurrence: None)
  Receive Date: 20110324
  Receipt Date: 20110310
  Transmission Date: 20110831
  Serious: Yes (Other)
  Sender: FDA-Public Use
  Company Number: PHHY2011US19949

PATIENT
  Sex: Female

DRUGS (1)
  1. GLEEVEC [Suspect]
     Indication: CHRONIC MYELOID LEUKAEMIA
     Dosage: 400 MG, DAILY
     Route: 048
     Dates: start: 20100501, end: 20101001

REACTIONS (5)
  - HEADACHE [None]
  - ASTHENIA [None]
  - PALPITATIONS [None]
  - LETHARGY [None]
  - TACHYCARDIA [None]
